FAERS Safety Report 6735609-3 (Version None)
Quarter: 2010Q2

REPORT INFORMATION
  Report Type: 
  Country: None (occurrence: None)
  Receive Date: 20100519
  Receipt Date: 20100506
  Transmission Date: 20101027
  Serious: Yes (Other)
  Sender: FDA-Public Use
  Company Number: 1000009635

PATIENT
  Age: 51 Year
  Sex: Male
  Weight: 125 kg

DRUGS (6)
  1. ESCITALOPRAM [Suspect]
     Indication: DEPRESSION
     Dosage: 10 MG (10 MG, 1 IN 1 D), ORAL
     Route: 048
     Dates: start: 20090729
  2. ALCOHOL [Suspect]
     Route: 048
     Dates: start: 20091001
  3. COTAREG [Concomitant]
  4. CHRONADALATE [Concomitant]
  5. SIMVASTATIN [Concomitant]
  6. INIPOMP [Concomitant]

REACTIONS (3)
  - AGGRESSION [None]
  - ALCOHOL INTERACTION [None]
  - AMNESIA [None]
